FAERS Safety Report 16462373 (Version 1)
Quarter: 2019Q2

REPORT INFORMATION
  Report Type: Spontaneous
  Country: CA (occurrence: CA)
  Receive Date: 20190621
  Receipt Date: 20190621
  Transmission Date: 20190711
  Serious: Yes (Hospitalization)
  Sender: FDA-Public Use
  Company Number: CA-PFIZER INC-2019258102

PATIENT
  Age: 71 Year
  Sex: Male

DRUGS (6)
  1. XELJANZ [Suspect]
     Active Substance: TOFACITINIB CITRATE
     Indication: RHEUMATOID ARTHRITIS
     Dosage: 5 MG, 2X/DAY
     Route: 048
     Dates: start: 20190424, end: 20190529
  2. CALCIUM [Concomitant]
     Active Substance: CALCIUM
     Dosage: UNK
     Route: 065
  3. METHOTREXATE SODIUM. [Concomitant]
     Active Substance: METHOTREXATE SODIUM
     Dosage: 15 MG, WEEKLY
     Route: 058
  4. FOLIC ACID. [Concomitant]
     Active Substance: FOLIC ACID
     Dosage: 5 MG, 1X/DAY (6DAYS/WEEK)
     Route: 065
  5. DICLOFENAC [Concomitant]
     Active Substance: DICLOFENAC
     Dosage: 25 MG, 2X/DAY
     Route: 065
  6. TECTA [Concomitant]
     Active Substance: PANTOPRAZOLE MAGNESIUM
     Dosage: UNK
     Route: 065

REACTIONS (8)
  - Upper limb fracture [Not Recovered/Not Resolved]
  - Skin abrasion [Not Recovered/Not Resolved]
  - Dizziness [Recovered/Resolved]
  - Fall [Unknown]
  - Lower limb fracture [Unknown]
  - Arthralgia [Unknown]
  - Loss of personal independence in daily activities [Unknown]
  - Joint noise [Unknown]

NARRATIVE: CASE EVENT DATE: 2019
